FAERS Safety Report 4404528-X (Version None)
Quarter: 2004Q3

REPORT INFORMATION
  Report Type: 
  Country: None (occurrence: None)
  Receive Date: 20040720
  Receipt Date: 20040709
  Transmission Date: 20050211
  Serious: Yes (Other)
  Sender: FDA-Public Use
  Company Number: 2004223215DE

PATIENT
  Age: 21 Year
  Sex: Male

DRUGS (1)
  1. DALTEPARIN SODIUM (DALTEPARIN SODIUM) SOLUTION, STERILE [Suspect]
     Indication: THROMBOSIS PROPHYLAXIS

REACTIONS (5)
  - DRUG INEFFECTIVE [None]
  - PLATELET COUNT DECREASED [None]
  - PORTAL VEIN THROMBOSIS [None]
  - PULMONARY EMBOLISM [None]
  - VENA CAVA THROMBOSIS [None]
